FAERS Safety Report 8390211-5 (Version None)
Quarter: 2012Q1

REPORT INFORMATION
  Report Type: 
  Country: None (occurrence: None)
  Receive Date: 20120323
  Receipt Date: 20110331
  Transmission Date: 20120608
  Serious: Yes (Other)
  Sender: FDA-Public Use
  Company Number: 163-21880-11040205

PATIENT
  Age: 84 Year
  Sex: Male
  Weight: 78.6 kg

DRUGS (8)
  1. ACYCLOVIR (ACICLOVIR)(UNKNOWN) [Concomitant]
  2. INDOCIN (INDOMETACIN)(UNKNOWN) [Concomitant]
  3. DEXAMETHASONE [Concomitant]
  4. COUMADIN [Concomitant]
  5. ACUPRIL (QUINAPRIL)(UNKNOWN) [Concomitant]
  6. SOTALOL (SOTALOL)(UNKNOWN) [Concomitant]
  7. REVLIMID [Suspect]
     Indication: MULTIPLE MYELOMA
     Dosage: 10 MG, DAILY X 3 WEEKS, STOP 1 WEEK, PO
     Route: 048
     Dates: start: 20110301
  8. LASIX [Concomitant]

REACTIONS (2)
  - RASH PAPULAR [None]
  - RASH ERYTHEMATOUS [None]
